FAERS Safety Report 19469485 (Version 1)
Quarter: 2021Q2

REPORT INFORMATION
  Report Type: Spontaneous
  Country: US (occurrence: US)
  Receive Date: 20210629
  Receipt Date: 20210629
  Transmission Date: 20210717
  Serious: Yes (Hospitalization, Other)
  Sender: FDA-Public Use
  Company Number: US-SA-2021SA204103

PATIENT
  Age: 22 Year
  Sex: Female

DRUGS (1)
  1. LOVENOX [Suspect]
     Active Substance: ENOXAPARIN SODIUM

REACTIONS (8)
  - Fall [Unknown]
  - Skin discolouration [Unknown]
  - Paraesthesia [Unknown]
  - Sensory loss [Unknown]
  - Hypoaesthesia [Unknown]
  - Face injury [Unknown]
  - Limb discomfort [Unknown]
  - Muscle spasms [Unknown]

NARRATIVE: CASE EVENT DATE: 20210502
